FAERS Safety Report 7469299-1 (Version None)
Quarter: 2011Q2

REPORT INFORMATION
  Report Type: 
  Country: None (occurrence: None)
  Receive Date: 20110510
  Receipt Date: 20110506
  Transmission Date: 20111010
  Serious: Yes (Death)
  Sender: FDA-Public Use
  Company Number: BR-PFIZER INC-2011098670

PATIENT
  Age: 83 Year
  Sex: Female

DRUGS (1)
  1. GENOTROPIN [Suspect]
     Dosage: 0.2 MG, 7 TIMES PER WEEK
     Route: 058
     Dates: start: 20100430

REACTIONS (1)
  - DEATH [None]
